FAERS Safety Report 24881631 (Version 2)
Quarter: 2025Q1

REPORT INFORMATION
  Report Type: Other
  Country: US (occurrence: US)
  Receive Date: 20250124
  Receipt Date: 20250327
  Transmission Date: 20250409
  Serious: Yes (Life-Threatening, Hospitalization)
  Sender: MERCK KGAA
  Company Number: US-Merck Healthcare KGaA-2025002188

PATIENT
  Age: 49 Year
  Sex: Male

DRUGS (1)
  1. LEVOTHYROXINE [Suspect]
     Active Substance: LEVOTHYROXINE
     Indication: Post procedural hypothyroidism

REACTIONS (5)
  - Hypoxia [Recovering/Resolving]
  - Acute pulmonary oedema [Unknown]
  - Cardiac failure [Unknown]
  - Supraventricular tachycardia [Recovered/Resolved]
  - Off label use [Unknown]
